FAERS Safety Report 7088620-X (Version None)
Quarter: 2010Q4

REPORT INFORMATION
  Report Type: 
  Country: None (occurrence: None)
  Receive Date: 20101029
  Receipt Date: 20101027
  Transmission Date: 20110411
  Serious: Yes (Other)
  Sender: FDA-Public Use
  Company Number: SP03157

PATIENT
  Age: 56 Year
  Sex: Female
  Weight: 76.3 kg

DRUGS (6)
  1. MOVIPREP [Suspect]
     Indication: BOWEL PREPARATION
     Dosage: 2 LIT, SPLIT DOSE REGIMEN, ORAL
     Route: 048
     Dates: start: 20100926, end: 20100927
  2. PHENTERMINE [Concomitant]
  3. LISINOPRIL [Concomitant]
  4. ESTRADIOL [Concomitant]
  5. LEVOTHYROXINE [Concomitant]
  6. ASPIRIN [Concomitant]

REACTIONS (2)
  - COLITIS ISCHAEMIC [None]
  - DIARRHOEA HAEMORRHAGIC [None]
